FAERS Safety Report 13569224 (Version 2)
Quarter: 2017Q2

REPORT INFORMATION
  Report Type: Report from Study
  Country: JP (occurrence: JP)
  Receive Date: 20170522
  Receipt Date: 20170606
  Transmission Date: 20170830
  Serious: No
  Sender: FDA-Public Use
  Company Number: JP-BAYER-2017-091418

PATIENT
  Age: 61 Year
  Sex: Male
  Weight: 65 kg

DRUGS (6)
  1. REGORAFENIB [Suspect]
     Active Substance: REGORAFENIB
     Indication: HEPATOCELLULAR CARCINOMA
     Dosage: 160 MG, QD
     Route: 048
     Dates: start: 201401, end: 201403
  2. REGORAFENIB [Suspect]
     Active Substance: REGORAFENIB
     Indication: HEPATOCELLULAR CARCINOMA
     Dosage: 120 MG, QD
     Route: 048
     Dates: start: 201403, end: 201511
  3. PARIET [Concomitant]
     Active Substance: RABEPRAZOLE SODIUM
     Dosage: UNK
     Route: 048
  4. URSO [Concomitant]
     Active Substance: URSODIOL
     Dosage: UNK
  5. REGORAFENIB [Suspect]
     Active Substance: REGORAFENIB
     Indication: HEPATOCELLULAR CARCINOMA
     Dosage: 120 MG, QD
     Route: 048
     Dates: start: 201310, end: 201401
  6. REGORAFENIB [Suspect]
     Active Substance: REGORAFENIB
     Indication: HEPATOCELLULAR CARCINOMA
     Dosage: 160 MG, QD
     Route: 048
     Dates: start: 20130913, end: 201309

REACTIONS (11)
  - Blood albumin decreased [None]
  - Gait disturbance [None]
  - Palmar-plantar erythrodysaesthesia syndrome [None]
  - Ascites [None]
  - Hypertension [None]
  - Hypertension [None]
  - Blister [None]
  - Ear discomfort [None]
  - Malaise [None]
  - Hypertension [None]
  - Dysphonia [None]

NARRATIVE: CASE EVENT DATE: 201309
